FAERS Safety Report 4372008-6 (Version None)
Quarter: 2004Q2

REPORT INFORMATION
  Report Type: 
  Country: None (occurrence: None)
  Receive Date: 20040602
  Receipt Date: 20040520
  Transmission Date: 20050107
  Serious: Yes (Hospitalization)
  Sender: FDA-Public Use
  Company Number: RB-726-2004

PATIENT
  Sex: Male

DRUGS (1)
  1. BUPRENORPHINE HYDROCHLORIDE [Suspect]
     Dosage: 2 MG QD
     Route: 060

REACTIONS (1)
  - FURUNCLE [None]
